FAERS Safety Report 7300760-6 (Version None)
Quarter: 2011Q1

REPORT INFORMATION
  Report Type: 
  Country: None (occurrence: None)
  Receive Date: 20110103
  Receipt Date: 20080827
  Transmission Date: 20110831
  Serious: Yes (Hospitalization, Other)
  Sender: FDA-Public Use
  Company Number: US-001804

PATIENT
  Age: 50 Year
  Sex: Female
  Weight: 75.9 kg

DRUGS (1)
  1. MULTIHANCE [Suspect]
     Indication: NUCLEAR MAGNETIC RESONANCE IMAGING
     Dosage: 16ML QD INTRAVENOUS
     Route: 042
     Dates: start: 20080827, end: 20080827

REACTIONS (1)
  - HYPERSENSITIVITY [None]
